FAERS Safety Report 19145234 (Version 7)
Quarter: 2021Q4

REPORT INFORMATION
  Report Type: Report from Study
  Country: FR (occurrence: FR)
  Receive Date: 20210416
  Receipt Date: 20211021
  Transmission Date: 20220303
  Serious: Yes (Hospitalization)
  Sender: FDA-Public Use
  Company Number: FR-CC-90009-AML-002-4011001-20210409-0004SG

PATIENT
  Age: 73 Year
  Sex: Male
  Weight: 80 kg

DRUGS (13)
  1. INVESTIGATIONAL PRODUCT [Suspect]
     Active Substance: INVESTIGATIONAL PRODUCT
     Indication: Acute myeloid leukaemia
     Dosage: 3 MG X 1 X 1 DAYS X 1 X 1 DAYS
     Route: 042
     Dates: start: 20210222, end: 20210222
  2. AZACITIDINE [Suspect]
     Active Substance: AZACITIDINE
     Indication: Acute myeloid leukaemia
     Dosage: 149 MG X 1 X 1 DAYS X 1 X 1 DAYS
     Route: 058
     Dates: start: 20210219, end: 20210219
  3. VENETOCLAX [Suspect]
     Active Substance: VENETOCLAX
     Indication: Acute myeloid leukaemia
     Dosage: 100 MG X 1 X 1 DAYS X 1 X 1 DAYS
     Route: 048
     Dates: start: 20210219, end: 20210219
  4. LERCANDIPINE [Concomitant]
     Indication: Hypertension
     Dosage: 20 MG X 1 X 1 DAYS X 1 X 1 DAYS
     Route: 048
     Dates: end: 20210326
  5. BACTRIM [Concomitant]
     Active Substance: SULFAMETHOXAZOLE\TRIMETHOPRIM
     Indication: Prophylaxis
     Dosage: 800/160 MG X 3 X 1 WEEKS X 3 X 1 WEEKS
     Route: 048
     Dates: start: 20210306, end: 20210328
  6. CALCIDOSE [Concomitant]
     Indication: Prophylaxis
     Dosage: 500 MG X 3 X 1 DAYS X 3 X 1 DAYS
     Route: 048
     Dates: start: 20210218, end: 20210328
  7. DEXAMETHASONE [Concomitant]
     Active Substance: DEXAMETHASONE
     Indication: Oedema peripheral
     Dosage: 10 MG X 2 X 1 DAYS X 2 X 1 DAYS
     Route: 042
     Dates: start: 20210328, end: 20210402
  8. LEUCOVORIN CALCIUM [Concomitant]
     Active Substance: LEUCOVORIN CALCIUM
     Indication: Prophylaxis
     Dosage: 5 MG X 1 X 1 WEEKS X 1 X 1 WEEKS
     Route: 048
     Dates: start: 20210306
  9. POSACONAZOLE [Concomitant]
     Active Substance: POSACONAZOLE
     Indication: Prophylaxis
     Dosage: 100 MG X 3 X 1 DAYS X 3 X 1 DAYS
     Route: 048
     Dates: start: 20210303, end: 20210322
  10. ROCALTROL [Concomitant]
     Active Substance: CALCITRIOL
     Indication: Prophylaxis
     Dosage: 0.25 UG X 1 X 1 DAYS X 1 X 1 DAYS
     Route: 048
     Dates: start: 20210219, end: 20210328
  11. SPASFON [Concomitant]
     Indication: Prophylaxis
     Dosage: 40 MG X 4 X 1 DAYS X 4 X 1 DAYS
     Route: 042
     Dates: start: 20210326, end: 20210328
  12. VALACYCLOVIR HYDROCHLORIDE [Concomitant]
     Active Substance: VALACYCLOVIR HYDROCHLORIDE
     Indication: Prophylaxis
     Dosage: 500 MG X 2 X 1 DAYS X 2 X 1 DAYS
     Route: 048
     Dates: start: 20210301, end: 20210328
  13. CHOLECALCIFEROL [Concomitant]
     Active Substance: CHOLECALCIFEROL
     Indication: Prophylaxis
     Dosage: 80000 IU X ONCE X ONCE
     Route: 048
     Dates: start: 20210324, end: 20210324

REACTIONS (2)
  - Diabetic hyperosmolar coma [Recovered/Resolved]
  - Nervous system disorder [Recovered/Resolved]

NARRATIVE: CASE EVENT DATE: 20210402
